FAERS Safety Report 24260075 (Version 1)
Quarter: 2024Q3

REPORT INFORMATION
  Report Type: Spontaneous
  Country: US (occurrence: None)
  Receive Date: 20240827
  Receipt Date: 20240827
  Transmission Date: 20241016
  Serious: Yes (Hospitalization)
  Sender: Public
  Company Number: None

PATIENT
  Age: 77 Year
  Sex: Male
  Weight: 72.45 kg

DRUGS (13)
  1. PEMBROLIZUMAB [Suspect]
     Active Substance: PEMBROLIZUMAB
     Indication: Metastatic malignant melanoma
     Dosage: OTHER FREQUENCY : 42 DAY CYCLES;?
     Route: 042
     Dates: start: 20240610, end: 20240722
  2. PREDNISONE [Suspect]
     Active Substance: PREDNISONE
     Dates: start: 20240520
  3. OMEPRAZOLE [Concomitant]
     Active Substance: OMEPRAZOLE
     Dates: start: 20180101
  4. PROCARDIA [Concomitant]
     Active Substance: NIFEDIPINE
     Dates: start: 20240319
  5. OMEGA-3 FATTY ACIDS [Concomitant]
     Active Substance: OMEGA-3 FATTY ACIDS
  6. VITAMINS [Concomitant]
     Active Substance: VITAMINS
     Dates: start: 20200101
  7. TAMSULOSIN [Concomitant]
     Active Substance: TAMSULOSIN
     Dates: start: 20240620
  8. CHONDROITIN SULFATE A\GLUCOSAMINE [Concomitant]
     Active Substance: CHONDROITIN SULFATE A\GLUCOSAMINE
     Dates: start: 20230101
  9. MYLANTA [Concomitant]
     Active Substance: ALUMINUM HYDROXIDE\DIMETHICONE\MAGNESIUM HYDROXIDE
     Dates: start: 20240528
  10. Metoprolol tatrate [Concomitant]
     Dates: start: 20240704
  11. APIXABAN [Concomitant]
     Active Substance: APIXABAN
     Dates: start: 20240715
  12. MAGNESIUM OXIDE [Concomitant]
     Active Substance: MAGNESIUM OXIDE
     Dates: start: 20240722
  13. ANTIVERT [Concomitant]
     Active Substance: MECLIZINE HYDROCHLORIDE

REACTIONS (12)
  - Muscular weakness [None]
  - Fatigue [None]
  - Loss of personal independence in daily activities [None]
  - Liver function test increased [None]
  - Blood creatine phosphokinase increased [None]
  - Hepatotoxicity [None]
  - Oesophageal stenosis [None]
  - Agitation [None]
  - Antiacetylcholine receptor antibody positive [None]
  - Myasthenia gravis [None]
  - Myositis [None]
  - Myocarditis [None]

NARRATIVE: CASE EVENT DATE: 20240819
